FAERS Safety Report 8509451-7 (Version None)
Quarter: 2012Q3

REPORT INFORMATION
  Report Type: 
  Country: None (occurrence: None)
  Receive Date: 20120713
  Receipt Date: 20120701
  Transmission Date: 20120928
  Serious: Yes (Other)
  Sender: FDA-Public Use
  Company Number: CH-ROCHE-1087638

PATIENT

DRUGS (2)
  1. XELODA [Suspect]
     Indication: RECTAL CANCER
     Route: 065
  2. OXALIPLATIN [Suspect]
     Indication: RECTAL CANCER
     Route: 065

REACTIONS (5)
  - DIARRHOEA [None]
  - HYPOKALAEMIA [None]
  - UROSEPSIS [None]
  - HYPONATRAEMIA [None]
  - RENAL FAILURE ACUTE [None]
